FAERS Safety Report 14782901 (Version 4)
Quarter: 2018Q2

REPORT INFORMATION
  Report Type: Spontaneous
  Country: US (occurrence: US)
  Receive Date: 20180420
  Receipt Date: 20180619
  Transmission Date: 20180711
  Serious: Yes (Hospitalization, Other)
  Sender: FDA-Public Use
  Company Number: US-JNJFOC-20180339654

PATIENT
  Age: 74 Year
  Sex: Female

DRUGS (2)
  1. RISPERDAL CONSTA [Suspect]
     Active Substance: RISPERIDONE
     Indication: PRODUCT USED FOR UNKNOWN INDICATION
     Dosage: INITIATED MAY BE IN 2011
     Route: 030
     Dates: end: 20180515
  2. MIRALAX [Concomitant]
     Active Substance: POLYETHYLENE GLYCOL 3350
     Route: 065

REACTIONS (18)
  - Dehydration [Unknown]
  - Temperature intolerance [Unknown]
  - Musculoskeletal chest pain [Unknown]
  - Fall [Unknown]
  - Blood pressure fluctuation [Unknown]
  - Adverse event [Unknown]
  - Tardive dyskinesia [Unknown]
  - Insomnia [Unknown]
  - Increased appetite [Unknown]
  - Weight increased [Unknown]
  - Suicide attempt [Unknown]
  - Mass [Unknown]
  - Eructation [Unknown]
  - Breast enlargement [Unknown]
  - Constipation [Not Recovered/Not Resolved]
  - Blood cholesterol abnormal [Recovering/Resolving]
  - Swelling [Unknown]
  - Urinary incontinence [Unknown]

NARRATIVE: CASE EVENT DATE: 20171126
